FAERS Safety Report 8486447-5 (Version None)
Quarter: 2012Q3

REPORT INFORMATION
  Report Type: 
  Country: None (occurrence: None)
  Receive Date: 20120703
  Receipt Date: 20120619
  Transmission Date: 20120928
  Serious: Yes (Hospitalization)
  Sender: FDA-Public Use
  Company Number: DK-WATSON-2012-08249

PATIENT
  Age: 3 Year
  Sex: Female

DRUGS (1)
  1. VALPROATE SODIUM [Suspect]
     Indication: EPILEPSY
     Dosage: 6000 MG, UNK
     Route: 048

REACTIONS (3)
  - HYPERAMMONAEMIA [None]
  - BLOOD LACTIC ACID INCREASED [None]
  - ACCIDENTAL OVERDOSE [None]
